FAERS Safety Report 19746892 (Version 1)
Quarter: 2021Q3

REPORT INFORMATION
  Report Type: Spontaneous
  Country: IT (occurrence: IT)
  Receive Date: 20210826
  Receipt Date: 20210826
  Transmission Date: 20211014
  Serious: Yes (Other)
  Sender: FDA-Public Use
  Company Number: IT-AUROBINDO-AUR-APL-2021-036160

PATIENT
  Age: 64 Year
  Sex: Male

DRUGS (2)
  1. TAPENTADOL [Suspect]
     Active Substance: TAPENTADOL
     Indication: INTERVERTEBRAL DISC PROTRUSION
     Dosage: 1 DOSAGE FORM, AS NECESSARY
     Route: 048
  2. IBUPROFEN. [Suspect]
     Active Substance: IBUPROFEN
     Indication: NECK PAIN
     Dosage: 2400 MILLIGRAM, AS NECESSARY
     Route: 048
     Dates: start: 20210727

REACTIONS (5)
  - Dyspepsia [Recovering/Resolving]
  - Abdominal distension [Recovering/Resolving]
  - Nausea [Recovering/Resolving]
  - Neck pain [Recovering/Resolving]
  - Abdominal pain upper [Recovering/Resolving]

NARRATIVE: CASE EVENT DATE: 20210729
